FAERS Safety Report 7708574-X (Version None)
Quarter: 2011Q3

REPORT INFORMATION
  Report Type: 
  Country: None (occurrence: None)
  Receive Date: 20110825
  Receipt Date: 20110810
  Transmission Date: 20111222
  Serious: Yes (Hospitalization)
  Sender: FDA-Public Use
  Company Number: US-UCBSA-038970

PATIENT
  Sex: Female
  Weight: 77.272 kg

DRUGS (7)
  1. CIMZIA [Suspect]
     Indication: CROHN'S DISEASE
     Route: 058
     Dates: start: 20101018
  2. HYDROCHLOROTHIAZIDE [Concomitant]
     Route: 048
     Dates: start: 20110625
  3. HYDROCHLOROTHIAZIDE [Concomitant]
     Indication: BLOOD PRESSURE
     Route: 048
     Dates: start: 20110625
  4. VITAMIN D [Concomitant]
     Indication: VITAMIN D DEFICIENCY
     Dosage: 2000 UNITS
     Route: 048
     Dates: start: 20110328
  5. TYLENOL-500 [Concomitant]
     Indication: PAIN
     Dosage: 350 MG (2 TABS) EVERY 6 HRS AS NEEDED
     Route: 048
     Dates: start: 20110701
  6. AZATHIOPRINE [Concomitant]
     Route: 048
     Dates: start: 20070701
  7. PROVENTIL [Concomitant]
     Indication: WHEEZING
     Dosage: ONCE EVERY 4-6 HRS AS NEEDED; DOSE PER INTAKE: 2 PUFFS
     Route: 048
     Dates: start: 20110121

REACTIONS (4)
  - PALPITATIONS [None]
  - FALL [None]
  - DYSPNOEA [None]
  - TACHYCARDIA [None]
